FAERS Safety Report 13949212 (Version 3)
Quarter: 2017Q4

REPORT INFORMATION
  Report Type: Spontaneous
  Country: US (occurrence: US)
  Receive Date: 20170908
  Receipt Date: 20171108
  Transmission Date: 20180320
  Serious: No
  Sender: FDA-Public Use
  Company Number: US-JAZZ-2017-US-009967

PATIENT
  Age: 52 Year
  Sex: Female

DRUGS (31)
  1. DOXYCYCLINE HYCLATE. [Concomitant]
     Active Substance: DOXYCYCLINE HYCLATE
  2. SYNTHROID [Concomitant]
     Active Substance: LEVOTHYROXINE SODIUM
  3. DEXILANT [Concomitant]
     Active Substance: DEXLANSOPRAZOLE
  4. SUCRALFATE. [Concomitant]
     Active Substance: SUCRALFATE
  5. NORCO [Concomitant]
     Active Substance: ACETAMINOPHEN\HYDROCODONE BITARTRATE
  6. INDERAL [Concomitant]
     Active Substance: PROPRANOLOL HYDROCHLORIDE
  7. GLUCOSAMINE + CHONDROITIN          /01430901/ [Concomitant]
  8. CALCIUM ACETATE. [Concomitant]
     Active Substance: CALCIUM ACETATE
  9. DICLOFENAC SODIUM. [Concomitant]
     Active Substance: DICLOFENAC SODIUM
  10. HYDROCORTISONE. [Concomitant]
     Active Substance: HYDROCORTISONE
  11. XYREM [Suspect]
     Active Substance: SODIUM OXYBATE
     Dosage: 3 G, BID
     Route: 048
     Dates: start: 201706, end: 2017
  12. NEURONTIN [Concomitant]
     Active Substance: GABAPENTIN
  13. KLONOPIN [Concomitant]
     Active Substance: CLONAZEPAM
  14. PANTOPRAZOLE SODIUM. [Concomitant]
     Active Substance: PANTOPRAZOLE SODIUM
  15. RESTASIS [Concomitant]
     Active Substance: CYCLOSPORINE
  16. SUDAFED [Concomitant]
     Active Substance: PSEUDOEPHEDRINE HYDROCHLORIDE
  17. TYLENOL EXTRA STRENGTH [Concomitant]
     Active Substance: ACETAMINOPHEN
  18. XYREM [Suspect]
     Active Substance: SODIUM OXYBATE
     Indication: CATAPLEXY
     Dosage: DOSE ADJUSTMENT
     Route: 048
     Dates: start: 201008, end: 201009
  19. XYREM [Suspect]
     Active Substance: SODIUM OXYBATE
     Dosage: 4.5 G, BID
     Route: 048
     Dates: start: 2017, end: 2017
  20. PENICILLIN VK [Concomitant]
     Active Substance: PENICILLIN V POTASSIUM
  21. BENZONATATE. [Concomitant]
     Active Substance: BENZONATATE
  22. XYREM [Suspect]
     Active Substance: SODIUM OXYBATE
     Indication: NARCOLEPSY
     Dosage: 2.25G, BID
     Route: 048
     Dates: start: 201007, end: 201008
  23. XYREM [Suspect]
     Active Substance: SODIUM OXYBATE
     Dosage: 4.5G, BID
     Route: 048
     Dates: start: 201009, end: 201706
  24. BACTROBAN [Concomitant]
     Active Substance: MUPIROCIN\MUPIROCIN CALCIUM
  25. ESTRACE [Concomitant]
     Active Substance: ESTRADIOL
  26. EFFEXOR [Concomitant]
     Active Substance: VENLAFAXINE HYDROCHLORIDE
  27. XYREM [Suspect]
     Active Substance: SODIUM OXYBATE
     Dosage: UNK (DECREASED DOSE)
     Route: 048
     Dates: start: 2017
  28. ZYRTEC [Concomitant]
     Active Substance: CETIRIZINE HYDROCHLORIDE
  29. BACITRACIN ZINC. [Concomitant]
     Active Substance: BACITRACIN ZINC
  30. NASONEX [Concomitant]
     Active Substance: MOMETASONE FUROATE
  31. VITAMIN D3 [Concomitant]
     Active Substance: CHOLECALCIFEROL

REACTIONS (9)
  - Asthenia [Not Recovered/Not Resolved]
  - Insomnia [Unknown]
  - Weight decreased [Unknown]
  - Feeding disorder [Not Recovered/Not Resolved]
  - Thinking abnormal [Not Recovered/Not Resolved]
  - Nausea [Unknown]
  - Diarrhoea [Not Recovered/Not Resolved]
  - Fatigue [Unknown]
  - Wrong technique in product usage process [Unknown]

NARRATIVE: CASE EVENT DATE: 201706
